FAERS Safety Report 25433122 (Version 1)
Quarter: 2025Q2

REPORT INFORMATION
  Report Type: Spontaneous
  Country: GB (occurrence: GB)
  Receive Date: 20250613
  Receipt Date: 20250613
  Transmission Date: 20250717
  Serious: Yes (Hospitalization)
  Sender: AUROBINDO
  Company Number: GB-LDELTA-2025000786

PATIENT
  Age: 57 Year
  Sex: Male

DRUGS (8)
  1. ACETAMINOPHEN [Suspect]
     Active Substance: ACETAMINOPHEN
     Indication: Product used for unknown indication
     Route: 065
  2. DIAZEPAM [Suspect]
     Active Substance: DIAZEPAM
     Indication: Product used for unknown indication
     Route: 065
  3. INSULIN NOS [Suspect]
     Active Substance: INSULIN NOS
     Indication: Product used for unknown indication
     Route: 065
  4. PROCYCLIDINE [Suspect]
     Active Substance: PROCYCLIDINE
     Indication: Product used for unknown indication
     Route: 065
  5. CLOZAPINE [Suspect]
     Active Substance: CLOZAPINE
     Indication: Schizophrenia
     Route: 065
     Dates: start: 20111102, end: 20201120
  6. CLOZAPINE [Suspect]
     Active Substance: CLOZAPINE
     Route: 065
     Dates: start: 20210902
  7. CLOZAPINE [Suspect]
     Active Substance: CLOZAPINE
     Route: 065
     Dates: start: 20250516, end: 20250516
  8. CLOZAPINE [Suspect]
     Active Substance: CLOZAPINE
     Route: 065
     Dates: start: 20250522

REACTIONS (2)
  - Hypoglycaemia [Not Recovered/Not Resolved]
  - Overdose [Not Recovered/Not Resolved]

NARRATIVE: CASE EVENT DATE: 20250516
